FAERS Safety Report 6602113-2 (Version None)
Quarter: 2010Q1

REPORT INFORMATION
  Report Type: 
  Country: None (occurrence: None)
  Receive Date: 20100225
  Receipt Date: 20100215
  Transmission Date: 20100710
  Serious: Yes (Other)
  Sender: FDA-Public Use
  Company Number: PHEH2009US17180

PATIENT
  Sex: Female
  Weight: 63.492 kg

DRUGS (23)
  1. EXJADE [Suspect]
     Indication: IRON OVERLOAD
     Dosage: 500 MG, QD
     Route: 048
     Dates: start: 20090801
  2. EXJADE [Suspect]
     Dosage: 500 MG, QOD
  3. PREDNISONE [Suspect]
     Dosage: 10 MG. UNK
     Route: 048
  4. ACETAMINOPHEN [Concomitant]
     Dosage: 160 MG, QD
     Route: 048
  5. ALBUTEROL [Concomitant]
     Dosage: 2.5 ML VIA NEBULIZER AS DIRECTED
  6. ASPERCREME [Concomitant]
     Dosage: 10%, ONE APPLICATION DAILY
     Route: 048
  7. ATIVAN [Concomitant]
     Indication: ANXIETY
     Dosage: 0.5 MG, BID
     Route: 048
  8. ATIVAN [Concomitant]
     Indication: INSOMNIA
  9. VITAMIN B COMPLEX CAP [Concomitant]
     Dosage: ONE TABLET, DAILY
     Route: 048
  10. CELEBREX [Concomitant]
     Dosage: 200 MG, QD
     Route: 048
  11. COREG [Concomitant]
     Dosage: 6.25 MG, QD
     Route: 048
  12. DAPSONE [Concomitant]
     Dosage: 100 MG, QD
     Route: 048
  13. FLOVENT [Concomitant]
     Dosage: 110 MCG, TAKE ONE BID
     Route: 045
  14. FOSAMAX [Concomitant]
     Dosage: 70 MG, QW
     Route: 048
  15. LIDODERM [Concomitant]
     Dosage: 5 %, QD
     Route: 061
  16. MUCINEX [Concomitant]
     Dosage: 50 MG, BID
     Route: 048
  17. MUCINEX [Concomitant]
     Dosage: 600 MG, Q12H
     Route: 048
  18. NYSTATIN [Concomitant]
     Dosage: 100K N/ML, SWISH AND SPIT TID
  19. PROTONIX [Concomitant]
     Dosage: 40 MG, QD
     Route: 048
  20. SYNTHROID [Concomitant]
     Dosage: 75 UG, QD
     Route: 048
  21. ULTRAM [Concomitant]
     Dosage: 200 MG, QD
  22. DARBEPOETIN ALFA [Concomitant]
     Dosage: UNK, UNK
     Route: 065
  23. ARANESP [Concomitant]
     Dosage: UNK, UNK

REACTIONS (18)
  - BLOOD GLUCOSE INCREASED [None]
  - BLOOD UREA INCREASED [None]
  - CARDIAC FAILURE [None]
  - CONTUSION [None]
  - DIARRHOEA HAEMORRHAGIC [None]
  - GLOMERULAR FILTRATION RATE DECREASED [None]
  - HYPOACUSIS [None]
  - KYPHOSIS [None]
  - LYMPHOCYTE PERCENTAGE DECREASED [None]
  - NEPHROGENIC ANAEMIA [None]
  - NEUTROPHIL COUNT INCREASED [None]
  - OEDEMA PERIPHERAL [None]
  - OXYGEN SATURATION DECREASED [None]
  - PROTEIN TOTAL DECREASED [None]
  - VERTIGO [None]
  - VISION BLURRED [None]
  - VISUAL IMPAIRMENT [None]
  - WHITE BLOOD CELL COUNT INCREASED [None]
